FAERS Safety Report 6015889-2 (Version None)
Quarter: 2008Q4

REPORT INFORMATION
  Report Type: 
  Country: None (occurrence: None)
  Receive Date: 20081222
  Receipt Date: 20081217
  Transmission Date: 20090506
  Serious: Yes (Life-Threatening, Hospitalization)
  Sender: FDA-Public Use
  Company Number: A0761314A

PATIENT
  Age: 53 Year
  Sex: Female

DRUGS (5)
  1. PAXIL [Suspect]
     Indication: DRUG USE FOR UNKNOWN INDICATION
     Route: 065
  2. LYRICA [Suspect]
     Indication: DRUG USE FOR UNKNOWN INDICATION
  3. PREVACID [Suspect]
     Indication: DRUG USE FOR UNKNOWN INDICATION
  4. CYMBALTA [Suspect]
     Indication: DRUG USE FOR UNKNOWN INDICATION
     Route: 065
  5. PAIN KILLERS [Suspect]

REACTIONS (6)
  - ABNORMAL BEHAVIOUR [None]
  - AGGRESSION [None]
  - PERSONALITY CHANGE [None]
  - PHYSICAL ASSAULT [None]
  - SUICIDE ATTEMPT [None]
  - TERMINAL STATE [None]
